FAERS Safety Report 24642662 (Version 10)
Quarter: 2025Q2

REPORT INFORMATION
  Report Type: Report from Study
  Country: CN (occurrence: CN)
  Receive Date: 20241120
  Receipt Date: 20250604
  Transmission Date: 20250717
  Serious: Yes (Hospitalization, Other)
  Sender: SANOFI AVENTIS
  Company Number: CN-SA-2024SA334723

PATIENT
  Age: 60 Year
  Sex: Male
  Weight: 54 kg

DRUGS (20)
  1. OXALIPLATIN [Suspect]
     Active Substance: OXALIPLATIN
     Indication: Oesophageal cancer metastatic
     Dosage: 85 KG/M2, QOW (FOR 12 CYCLES)
     Route: 042
     Dates: start: 20240913, end: 20240913
  2. OXALIPLATIN [Suspect]
     Active Substance: OXALIPLATIN
     Dosage: 85 MG/M2, QOW
     Route: 042
     Dates: start: 20241008, end: 20241028
  3. PEMBROLIZUMAB [Suspect]
     Active Substance: PEMBROLIZUMAB
     Indication: Oesophageal cancer metastatic
     Dosage: 400 MG, Q6W
     Route: 042
     Dates: start: 20240913, end: 20240913
  4. FLUOROURACIL SODIUM [Suspect]
     Active Substance: FLUOROURACIL SODIUM
     Indication: Oesophageal cancer metastatic
     Route: 042
     Dates: start: 20240913, end: 20240915
  5. FLUOROURACIL SODIUM [Suspect]
     Active Substance: FLUOROURACIL SODIUM
     Dosage: 400 MG, QOW
     Route: 040
     Dates: start: 20241008, end: 20241028
  6. FLUOROURACIL SODIUM [Suspect]
     Active Substance: FLUOROURACIL SODIUM
     Route: 042
     Dates: start: 20241008, end: 20241030
  7. LEUCOVORIN [Suspect]
     Active Substance: LEUCOVORIN\LEUCOVORIN CALCIUM
     Indication: Oesophageal cancer metastatic
     Dosage: 400 MG/M2, QOW
     Route: 042
     Dates: start: 20240913, end: 20240913
  8. LEUCOVORIN [Suspect]
     Active Substance: LEUCOVORIN\LEUCOVORIN CALCIUM
     Dosage: 400 MG/M2, QOW
     Route: 042
     Dates: start: 20241008, end: 20241028
  9. HYDROCHLOROTHIAZIDE\IRBESARTAN [Concomitant]
     Active Substance: HYDROCHLOROTHIAZIDE\IRBESARTAN
  10. NIFEDIPINE [Concomitant]
     Active Substance: NIFEDIPINE
     Dates: start: 202402
  11. POVIDONE-IODINE [Concomitant]
     Active Substance: POVIDONE-IODINE
     Dates: start: 20240912, end: 20240912
  12. LIDOCAINE [Concomitant]
     Active Substance: LIDOCAINE
     Dates: start: 20240912, end: 20240912
  13. COMPOUND SODIUM CHLORIDE [CALCIUM CHLORIDE;POTASSIUM CHLORIDE;SODIUM C [Concomitant]
     Dates: start: 20240913, end: 20240926
  14. METOCLOPRAMIDE [Concomitant]
     Active Substance: METOCLOPRAMIDE
     Dates: start: 20240913, end: 20240915
  15. PALONOSETRON HYDROCHLORIDE [Concomitant]
     Active Substance: PALONOSETRON HYDROCHLORIDE
     Dates: start: 20240913, end: 20240914
  16. ESOMEPRAZOLE [Concomitant]
     Active Substance: ESOMEPRAZOLE
     Dates: start: 20240913
  17. DEXAMETHASONE SODIUM PHOSPHATE [Concomitant]
     Active Substance: DEXAMETHASONE SODIUM PHOSPHATE
     Dates: start: 20240913, end: 20240913
  18. APREPITANT [Concomitant]
     Active Substance: APREPITANT
     Dates: start: 20240913, end: 20240913
  19. ONDANSETRON [Concomitant]
     Active Substance: ONDANSETRON
     Dates: start: 20240915, end: 20240919
  20. CARBOHYDRATES\FATTY ACIDS\MINERALS\PROTEIN\VITAMINS [Concomitant]
     Active Substance: CARBOHYDRATES\FATTY ACIDS\MINERALS\PROTEIN\VITAMINS
     Dates: start: 20240924, end: 20240930

REACTIONS (2)
  - Febrile neutropenia [Recovered/Resolved]
  - Myositis [Not Recovered/Not Resolved]

NARRATIVE: CASE EVENT DATE: 20240926
